FAERS Safety Report 24981981 (Version 2)
Quarter: 2025Q1

REPORT INFORMATION
  Report Type: Spontaneous
  Country: US (occurrence: US)
  Receive Date: 20250218
  Receipt Date: 20250303
  Transmission Date: 20250409
  Serious: Yes (Other)
  Sender: UCB
  Company Number: US-UCBSA-2025008811

PATIENT
  Sex: Female
  Weight: 67.58 kg

DRUGS (1)
  1. CIMZIA [Suspect]
     Active Substance: CERTOLIZUMAB PEGOL
     Indication: Rheumatoid arthritis
     Dosage: 200 MILLIGRAM, EV 2 WEEKS(QOW)
     Route: 058
     Dates: start: 202402, end: 202408

REACTIONS (9)
  - Rheumatoid arthritis [Unknown]
  - Rhinovirus infection [Recovered/Resolved]
  - Respiratory syncytial virus infection [Recovered/Resolved]
  - Gastroenteritis viral [Recovered/Resolved]
  - COVID-19 [Recovered/Resolved]
  - Pharyngitis streptococcal [Recovered/Resolved]
  - Nail infection [Recovered/Resolved]
  - Headache [Recovered/Resolved]
  - Illness [Unknown]

NARRATIVE: CASE EVENT DATE: 20240101
